FAERS Safety Report 19630272 (Version 1)
Quarter: 2021Q3

REPORT INFORMATION
  Report Type: Spontaneous
  Country: US (occurrence: US)
  Receive Date: 20210728
  Receipt Date: 20210728
  Transmission Date: 20211014
  Serious: No
  Sender: FDA-Public Use
  Company Number: US-SA-2021SA243032

PATIENT
  Sex: Male

DRUGS (7)
  1. CARBOPLATIN. [Suspect]
     Active Substance: CARBOPLATIN
  2. ENZALUTAMIDE [Suspect]
     Active Substance: ENZALUTAMIDE
  3. ABIRATERONE ACETATE. [Suspect]
     Active Substance: ABIRATERONE ACETATE
  4. MITOXANTRONE [Suspect]
     Active Substance: MITOXANTRONE HYDROCHLORIDE
  5. JEVTANA [Suspect]
     Active Substance: CABAZITAXEL
  6. CYCLOPHOSPHAMIDE. [Suspect]
     Active Substance: CYCLOPHOSPHAMIDE
  7. TAXOTERE [Suspect]
     Active Substance: DOCETAXEL

REACTIONS (1)
  - Disease progression [Unknown]
